FAERS Safety Report 10962783 (Version 1)
Quarter: 2015Q1

REPORT INFORMATION
  Report Type: Spontaneous
  Country: US (occurrence: US)
  Receive Date: 20150327
  Receipt Date: 20150327
  Transmission Date: 20150721
  Serious: No
  Sender: FDA-Public Use
  Company Number: US-GLAXOSMITHKLINE-US2015GSK040958

PATIENT
  Sex: Female

DRUGS (2)
  1. ADVAIR DISKUS [Suspect]
     Active Substance: FLUTICASONE PROPIONATE\SALMETEROL XINAFOATE
     Indication: CHRONIC OBSTRUCTIVE PULMONARY DISEASE
     Dosage: UNK
     Dates: start: 2014
  2. SEREVENT [Suspect]
     Active Substance: SALMETEROL XINAFOATE
     Dosage: UNK
     Dates: start: 2013

REACTIONS (3)
  - Alopecia [Unknown]
  - Drug ineffective [Unknown]
  - Pruritus generalised [Unknown]
